FAERS Safety Report 17544339 (Version 1)
Quarter: 2020Q1

REPORT INFORMATION
  Report Type: Spontaneous
  Country: PK (occurrence: PK)
  Receive Date: 20200316
  Receipt Date: 20200316
  Transmission Date: 20200409
  Serious: Yes (Hospitalization, Other)
  Sender: FDA-Public Use
  Company Number: PK-SA-2020SA063625

PATIENT
  Sex: Female

DRUGS (6)
  1. LOWPLAT [Concomitant]
     Indication: PLATELET AGGREGATION
     Dosage: 75 MG
     Route: 065
  2. AMARYL [Suspect]
     Active Substance: GLIMEPIRIDE
     Indication: HYPERGLYCAEMIA
     Dosage: 2 MG INMORNING AND 1 MG IN EVENING, BID
     Route: 048
     Dates: start: 20100101, end: 20200307
  3. VALSARTAN. [Concomitant]
     Active Substance: VALSARTAN
     Indication: HYPERTENSION
     Dosage: UNK MG
     Route: 065
  4. LANTUS SOLOSTAR [Suspect]
     Active Substance: INSULIN GLARGINE
     Indication: HYPERGLYCAEMIA
     Dosage: 12 IU, HS
     Route: 058
     Dates: start: 20200307
  5. ROSUVASTATIN. [Concomitant]
     Active Substance: ROSUVASTATIN
     Indication: HYPERLIPIDAEMIA
     Dosage: 20 MG
     Route: 065
  6. TAGIPMET [Concomitant]
     Indication: HYPERGLYCAEMIA
     Dosage: UNK
     Route: 065

REACTIONS (5)
  - Vascular graft [Unknown]
  - Loss of consciousness [Recovered/Resolved]
  - Blood glucose fluctuation [Unknown]
  - Fall [Unknown]
  - Hypoglycaemia [Recovering/Resolving]

NARRATIVE: CASE EVENT DATE: 201412
